FAERS Safety Report 4338784-3 (Version None)
Quarter: 2004Q2

REPORT INFORMATION
  Report Type: 
  Country: None (occurrence: None)
  Receive Date: 20040414
  Receipt Date: 20031107
  Transmission Date: 20050107
  Serious: Yes (Hospitalization, Other)
  Sender: FDA-Public Use
  Company Number: GB-BRISTOL-MYERS SQUIBB COMPANY-12433538

PATIENT
  Age: 53 Year
  Sex: Male

DRUGS (2)
  1. CARDIOLITE [Suspect]
     Indication: SCAN PARATHYROID
     Dates: start: 20030814, end: 20030814
  2. ANTIDEPRESSANT [Concomitant]

REACTIONS (8)
  - DISORIENTATION [None]
  - FLUSHING [None]
  - HYPERHIDROSIS [None]
  - INJECTION SITE REACTION [None]
  - PALLOR [None]
  - SNORING [None]
  - SYNCOPE [None]
  - VOMITING [None]
